FAERS Safety Report 6346823-3 (Version None)
Quarter: 2009Q3

REPORT INFORMATION
  Report Type: 
  Country: None (occurrence: None)
  Receive Date: 20090910
  Receipt Date: 20090902
  Transmission Date: 20100115
  Serious: Yes (Hospitalization)
  Sender: FDA-Public Use
  Company Number: US-BIOGENIDEC-2009BI003659

PATIENT
  Age: 50 Year
  Sex: Female

DRUGS (3)
  1. AVONEX [Suspect]
     Indication: MULTIPLE SCLEROSIS
     Route: 030
     Dates: start: 20000117, end: 20010117
  2. AVONEX [Suspect]
     Route: 030
     Dates: end: 20090202
  3. AVONEX [Suspect]
     Route: 030
     Dates: start: 20090522

REACTIONS (2)
  - CORNEAL DEGENERATION [None]
  - HERPES OPHTHALMIC [None]
